FAERS Safety Report 10577315 (Version 3)
Quarter: 2014Q4

REPORT INFORMATION
  Report Type: Spontaneous
  Country: AU (occurrence: AU)
  Receive Date: 20141111
  Receipt Date: 20141126
  Transmission Date: 20150529
  Serious: Yes (Other)
  Sender: FDA-Public Use
  Company Number: AU-PFIZER INC-2014270650

PATIENT
  Age: 35 Year
  Sex: Female

DRUGS (3)
  1. NEXIUM [Concomitant]
     Active Substance: ESOMEPRAZOLE MAGNESIUM
     Dosage: 40 MG, 1X/DAY
     Dates: start: 201407
  2. PRISTIQ EXTENDED RELEASE [Suspect]
     Active Substance: DESVENLAFAXINE SUCCINATE
     Indication: DEPRESSION
     Dosage: 150 MG, 1X/DAY
     Dates: start: 2006, end: 2014
  3. ENDONE [Suspect]
     Active Substance: OXYCODONE HYDROCHLORIDE
     Indication: PROCEDURAL PAIN
     Dosage: UNK
     Dates: start: 2014, end: 2014

REACTIONS (7)
  - Rectocele [Unknown]
  - Enterocele [Unknown]
  - Drug ineffective [Recovered/Resolved]
  - Adhesion [Unknown]
  - Syncope [Recovered/Resolved]
  - Dizziness [Recovered/Resolved]
  - Nausea [Recovered/Resolved]

NARRATIVE: CASE EVENT DATE: 2014
